FAERS Safety Report 6693210-4 (Version None)
Quarter: 2010Q2

REPORT INFORMATION
  Report Type: 
  Country: None (occurrence: None)
  Receive Date: 20100421
  Receipt Date: 20100421
  Transmission Date: 20101027
  Serious: Yes (Other)
  Sender: FDA-Public Use
  Company Number: None

PATIENT
  Age: 54 Year
  Sex: Female
  Weight: 70.3075 kg

DRUGS (1)
  1. VALACYCLOVIR [Suspect]
     Indication: ORAL HERPES
     Dosage: 2 GM EVERY 12 HRS PO
     Route: 048
     Dates: start: 20100416, end: 20100416

REACTIONS (6)
  - ABDOMINAL DISCOMFORT [None]
  - AGITATION [None]
  - DIZZINESS [None]
  - DRUG INTERACTION [None]
  - ERYTHEMA [None]
  - FEELING HOT [None]
